FAERS Safety Report 10505462 (Version 1)
Quarter: 2014Q4

REPORT INFORMATION
  Report Type: Spontaneous
  Country: BR (occurrence: BR)
  Receive Date: 20141008
  Receipt Date: 20141008
  Transmission Date: 20150528
  Serious: Yes (Other)
  Sender: FDA-Public Use
  Company Number: BR-009507513-1410BRA002527

PATIENT
  Age: 82 Year
  Sex: Female
  Weight: 70 kg

DRUGS (2)
  1. LOSARTAN POTASSIUM. [Suspect]
     Active Substance: LOSARTAN POTASSIUM
     Indication: HYPERTENSION
     Dosage: 50 MG, QD
     Route: 048
  2. MAREVAN [Concomitant]
     Active Substance: WARFARIN SODIUM
     Indication: ANTIPLATELET THERAPY
     Dosage: 0.5 DF, QD
     Route: 048
     Dates: start: 2009

REACTIONS (7)
  - Strabismus [Unknown]
  - Respiratory tract oedema [Unknown]
  - Hypothyroidism [Unknown]
  - Cardiac disorder [Not Recovered/Not Resolved]
  - Cardiac pacemaker insertion [Unknown]
  - Cataract operation [Unknown]
  - Glaucoma [Not Recovered/Not Resolved]

NARRATIVE: CASE EVENT DATE: 201204
